FAERS Safety Report 7008187-1 (Version None)
Quarter: 2010Q3

REPORT INFORMATION
  Report Type: 
  Country: None (occurrence: None)
  Receive Date: 20100922
  Receipt Date: 20100910
  Transmission Date: 20110219
  Serious: No
  Sender: FDA-Public Use
  Company Number: US-B.I. PHARMACEUTICALS,INC./RIDGEFIELD-2010-BP-10391BP

PATIENT
  Sex: Female

DRUGS (4)
  1. SPIRIVA [Suspect]
     Indication: CHRONIC OBSTRUCTIVE PULMONARY DISEASE
     Dosage: 18 MCG
     Route: 055
     Dates: start: 20080101
  2. SPIRIVA [Suspect]
     Indication: LUNG NEOPLASM MALIGNANT
  3. CLONAZEPAM [Concomitant]
     Indication: ANGER
  4. CLONAZEPAM [Concomitant]
     Indication: ANXIETY

REACTIONS (3)
  - ANGER [None]
  - COLONIC POLYP [None]
  - MACULAR DEGENERATION [None]
